FAERS Safety Report 19336699 (Version 1)
Quarter: 2021Q2

REPORT INFORMATION
  Report Type: Spontaneous
  Country: US (occurrence: US)
  Receive Date: 20210530
  Receipt Date: 20210530
  Transmission Date: 20210717
  Serious: No
  Sender: FDA-Public Use
  Company Number: US-PURDUE-USA-2020-0208170

PATIENT

DRUGS (2)
  1. HYDROCODONE BITARTRATE (SIMILAR TO NDA 206627) [Suspect]
     Active Substance: HYDROCODONE BITARTRATE
     Indication: PRODUCT USED FOR UNKNOWN INDICATION
     Dosage: UNK
     Route: 065
  2. OXYCODONE HYDROCHLORIDE (SIMILAR TO NDA 22?272) [Suspect]
     Active Substance: OXYCODONE HYDROCHLORIDE
     Indication: PRODUCT USED FOR UNKNOWN INDICATION
     Dosage: UNK
     Route: 065

REACTIONS (21)
  - Crying [Unknown]
  - Social avoidant behaviour [Unknown]
  - Sleep disorder [Unknown]
  - Pain [Unknown]
  - Lethargy [Unknown]
  - Depression [Unknown]
  - Emotional distress [Unknown]
  - Fear [Unknown]
  - Constipation [Unknown]
  - Abdominal distension [Unknown]
  - Anger [Unknown]
  - Aggression [Unknown]
  - Libido disorder [Unknown]
  - Behaviour disorder [Unknown]
  - Memory impairment [Unknown]
  - Mood swings [Unknown]
  - Weight increased [Unknown]
  - Weight decreased [Unknown]
  - Psychological trauma [Unknown]
  - Anxiety [Unknown]
  - Insomnia [Unknown]
